FAERS Safety Report 20438159 (Version 1)
Quarter: 2022Q1

REPORT INFORMATION
  Report Type: Spontaneous
  Country: US (occurrence: None)
  Receive Date: 20220204
  Receipt Date: 20220204
  Transmission Date: 20220423
  Serious: Yes (Other)
  Sender: FDA-Public Use
  Company Number: None

PATIENT
  Age: 74 Year
  Sex: Female
  Weight: 81 kg

DRUGS (1)
  1. RECLAST [Suspect]
     Active Substance: ZOLEDRONIC ACID
     Indication: Osteoporosis
     Dosage: OTHER QUANTITY : 1 INJECTION(S);?OTHER FREQUENCY : ONCE A YEAR;?
     Route: 042
     Dates: start: 20211202, end: 20211202

REACTIONS (5)
  - Pyrexia [None]
  - Pain in extremity [None]
  - Pruritus [None]
  - Rash [None]
  - Insomnia [None]

NARRATIVE: CASE EVENT DATE: 20211202
